FAERS Safety Report 23082548 (Version 1)
Quarter: 2023Q4

REPORT INFORMATION
  Report Type: Spontaneous
  Country: US (occurrence: US)
  Receive Date: 20231019
  Receipt Date: 20231019
  Transmission Date: 20240109
  Serious: Yes (Hospitalization, Other)
  Sender: FDA-Public Use
  Company Number: US-AVET LIFESCIENCES LTD-2023-AVET-000308

PATIENT
  Age: 219 Day
  Sex: Female

DRUGS (15)
  1. PROPOFOL [Suspect]
     Active Substance: PROPOFOL
     Indication: Sedative therapy
     Dosage: 25 MCG/KG/MIN, INCREASED EVERY 15 MINUTES
     Route: 042
  2. PROPOFOL [Suspect]
     Active Substance: PROPOFOL
     Dosage: 100 MICROGRAM PER KILOGRAM PER HOUR
     Route: 042
  3. PROPOFOL [Suspect]
     Active Substance: PROPOFOL
     Dosage: 125 MICROGRAM PER KILOGRAM PER MINUTE
     Route: 042
  4. PROPOFOL [Suspect]
     Active Substance: PROPOFOL
     Dosage: 150 MICROGRAM PER KILOGRAM PER MINUTES
     Route: 042
  5. PROPOFOL [Suspect]
     Active Substance: PROPOFOL
     Dosage: 175 MICROGRAM PER KILOGRAM PER MINUTES
     Route: 042
  6. PROPOFOL [Suspect]
     Active Substance: PROPOFOL
     Dosage: 40 MICROGRAM PER KILOGRAM PER MINUTES
     Route: 042
  7. MIDAZOLAM [Concomitant]
     Active Substance: MIDAZOLAM
     Dosage: 0.12 MG/KG/HR,  PRIOR TO THE INITIATION OF PROPOFOL ON DOL-219
     Route: 042
  8. MIDAZOLAM [Concomitant]
     Active Substance: MIDAZOLAM
     Dosage: 0.04 UNK, DISCONTINUED 5 HOURS AFTER INITIATION OF PROPOFOL
     Route: 042
  9. MIDAZOLAM [Concomitant]
     Active Substance: MIDAZOLAM
     Dosage: 0.03  MG/KG/HR
     Route: 042
  10. HYDROMORPHONE [Concomitant]
     Active Substance: HYDROMORPHONE
     Dosage: 0.055 MG/KG/HR
     Route: 042
  11. HYDROMORPHONE [Concomitant]
     Active Substance: HYDROMORPHONE
     Dosage: 0.005 TO 0.01 MG/KG/HR
     Route: 042
  12. HYDROMORPHONE [Concomitant]
     Active Substance: HYDROMORPHONE
     Dosage: 0.005 MILLIGRAM PER KILOGRAM PER HOUR
     Route: 042
  13. DEXMEDETOMIDINE [Concomitant]
     Active Substance: DEXMEDETOMIDINE
     Dosage: 1.5 MCG/KG/HR, ANOTHER 14 DAYS AND THEN WAS WEANED OFF DURING A PERIOD OF 12 DAYS
     Route: 042
  14. GABAPENTIN [Concomitant]
     Active Substance: GABAPENTIN
     Indication: Agitation
     Dosage: 5 MG/KG , 1 DOSE PER 8HRS
     Route: 042
  15. METHADONE [Concomitant]
     Active Substance: METHADONE HYDROCHLORIDE
     Dosage: 0.05 MILLIGRAM PER KILOGRAM, 1 DOSE PER 12HR
     Route: 042

REACTIONS (2)
  - Blood triglycerides increased [Recovering/Resolving]
  - Blood lactic acid increased [Recovering/Resolving]
